FAERS Safety Report 13949594 (Version 1)
Quarter: 2017Q3

REPORT INFORMATION
  Report Type: Spontaneous
  Country: JP (occurrence: JP)
  Receive Date: 20170908
  Receipt Date: 20170908
  Transmission Date: 20171128
  Serious: Yes (Death, Hospitalization, Other)
  Sender: FDA-Public Use
  Company Number: JP-ELI_LILLY_AND_COMPANY-JP201709000013

PATIENT
  Age: 59 Year
  Sex: Male
  Weight: 52 kg

DRUGS (12)
  1. BUSCOPAN [Concomitant]
     Active Substance: BUTYLSCOPOLAMINE BROMIDE
     Indication: PRODUCT USED FOR UNKNOWN INDICATION
     Dosage: UNK
     Dates: start: 20170522
  2. DEXART [Concomitant]
     Active Substance: DEXAMETHASONE SODIUM PHOSPHATE
     Indication: PRODUCT USED FOR UNKNOWN INDICATION
     Dosage: UNK
     Dates: start: 20170522
  3. CYRAMZA [Suspect]
     Active Substance: RAMUCIRUMAB
     Indication: RECTAL CANCER METASTATIC
     Dosage: 469.6 MG, UNK
     Route: 041
     Dates: start: 20170522
  4. LEVOFOLINATE                       /06682103/ [Concomitant]
     Active Substance: LEVOLEUCOVORIN CALCIUM
     Dosage: UNK
     Route: 041
     Dates: start: 20170522
  5. LEVOFOLINATE                       /06682103/ [Concomitant]
     Active Substance: LEVOLEUCOVORIN CALCIUM
     Indication: RECTAL CANCER METASTATIC
     Dosage: UNK
     Route: 041
     Dates: start: 20161107, end: 20170313
  6. 5 FU [Concomitant]
     Active Substance: FLUOROURACIL
     Dosage: UNK
     Route: 041
     Dates: start: 20170410, end: 20170508
  7. POLARAMINE [Concomitant]
     Active Substance: DEXCHLORPHENIRAMINE MALEATE
     Indication: PRODUCT USED FOR UNKNOWN INDICATION
     Dosage: UNK
     Dates: start: 20170522
  8. 5 FU [Concomitant]
     Active Substance: FLUOROURACIL
     Indication: RECTAL CANCER METASTATIC
     Dosage: UNK
     Route: 041
     Dates: start: 20161107, end: 20170313
  9. LEVOFOLINATE                       /06682103/ [Concomitant]
     Active Substance: LEVOLEUCOVORIN CALCIUM
     Dosage: UNK
     Route: 041
     Dates: start: 20170410, end: 20170508
  10. IRINOTECAN [Concomitant]
     Active Substance: IRINOTECAN
     Indication: RECTAL CANCER METASTATIC
     Dosage: UNK
     Route: 041
     Dates: start: 20170522
  11. 5 FU [Concomitant]
     Active Substance: FLUOROURACIL
     Dosage: UNK
     Route: 041
     Dates: start: 20170522, end: 20170524
  12. ALOXI [Concomitant]
     Active Substance: PALONOSETRON HYDROCHLORIDE
     Indication: PRODUCT USED FOR UNKNOWN INDICATION
     Dosage: UNK
     Dates: start: 20170522

REACTIONS (3)
  - Hepatic function abnormal [Unknown]
  - Fistula [Fatal]
  - Renal impairment [Unknown]

NARRATIVE: CASE EVENT DATE: 20170605
